FAERS Safety Report 10009394 (Version 2)
Quarter: 2014Q1

REPORT INFORMATION
  Report Type: Spontaneous
  Country: US (occurrence: US)
  Receive Date: 20140313
  Receipt Date: 20140313
  Transmission Date: 20141002
  Serious: No
  Sender: FDA-Public Use
  Company Number: US-GILEAD-2013-0075287

PATIENT
  Sex: Male

DRUGS (6)
  1. LETAIRIS [Suspect]
     Indication: PULMONARY HYPERTENSION
     Dosage: 5 MG, QD
     Dates: start: 20130509
  2. LETAIRIS [Suspect]
     Indication: COLLAGEN-VASCULAR DISEASE
  3. LASIX                              /00032601/ [Concomitant]
     Dosage: UNK
  4. LASIX                              /00032601/ [Concomitant]
     Dosage: 40 MG, QD
  5. ADCIRCA [Concomitant]
  6. TYVASO [Concomitant]

REACTIONS (4)
  - Hypotension [Unknown]
  - Allergic respiratory symptom [Unknown]
  - Asthenia [Unknown]
  - Local swelling [Unknown]
